FAERS Safety Report 14718685 (Version 1)
Quarter: 2018Q2

REPORT INFORMATION
  Report Type: Report from Study
  Country: None (occurrence: CO)
  Receive Date: 20180405
  Receipt Date: 20180405
  Transmission Date: 20180711
  Serious: Yes (Other)
  Sender: FDA-Public Use
  Company Number: CO-ABBVIE-17P-036-1874476-00

PATIENT
  Age: 27 Year
  Sex: Female
  Weight: 60 kg

DRUGS (1)
  1. HUMIRA [Suspect]
     Active Substance: ADALIMUMAB
     Indication: RHEUMATOID ARTHRITIS
     Route: 058
     Dates: start: 20121212, end: 20170123

REACTIONS (4)
  - Exposure during pregnancy [Unknown]
  - Procedural haemorrhage [Recovered/Resolved]
  - Live birth [Unknown]
  - Varicose veins pelvic [Recovered/Resolved]

NARRATIVE: CASE EVENT DATE: 20170916
